FAERS Safety Report 4828904-6 (Version None)
Quarter: 2005Q4

REPORT INFORMATION
  Report Type: 
  Country: None (occurrence: None)
  Receive Date: 20051014
  Receipt Date: 20050709
  Transmission Date: 20060501
  Serious: No
  Sender: FDA-Public Use
  Company Number: 2005SP001832

PATIENT
  Age: 98 Year
  Sex: Female
  Weight: 49.8957 kg

DRUGS (4)
  1. LUNESTA [Suspect]
     Indication: INSOMNIA
     Dosage: 2 MG; ORAL
     Route: 048
     Dates: start: 20050630, end: 20050704
  2. CYPROHEPTADINE HCL [Concomitant]
  3. SONATA [Concomitant]
  4. DESLORATADINE [Concomitant]

REACTIONS (3)
  - ABASIA [None]
  - DYSSTASIA [None]
  - FALL [None]
